FAERS Safety Report 4374505-6 (Version None)
Quarter: 2004Q2

REPORT INFORMATION
  Report Type: 
  Country: None (occurrence: None)
  Receive Date: 20040603
  Receipt Date: 20040520
  Transmission Date: 20050107
  Serious: Yes (Other)
  Sender: FDA-Public Use
  Company Number: 2004_000049

PATIENT
  Sex: Male

DRUGS (1)
  1. DEPOCYT (DEPOCYT) [Suspect]
     Indication: ACUTE LYMPHOCYTIC LEUKAEMIA

REACTIONS (2)
  - OXYGEN SATURATION DECREASED [None]
  - TEMPERATURE REGULATION DISORDER [None]
